FAERS Safety Report 7035340-3 (Version None)
Quarter: 2010Q4

REPORT INFORMATION
  Report Type: 
  Country: None (occurrence: None)
  Receive Date: 20101007
  Receipt Date: 20101007
  Transmission Date: 20110411
  Serious: Yes (Hospitalization)
  Sender: FDA-Public Use
  Company Number: None

PATIENT
  Age: 31 Year
  Sex: Female
  Weight: 55.3388 kg

DRUGS (2)
  1. LUPRON DEPOT 3 MONTH INJECTION TAP [Suspect]
     Indication: PAIN
     Dosage: 3 MONTH INJECTION GIVEN ONCE IM
     Route: 030
     Dates: start: 20061016, end: 20070116
  2. LUPRON DEPOT 3 MONTH INJECTION TAP [Suspect]
     Indication: PELVIC PAIN
     Dosage: 3 MONTH INJECTION GIVEN ONCE IM
     Route: 030
     Dates: start: 20061016, end: 20070116

REACTIONS (18)
  - ABASIA [None]
  - ARTHRALGIA [None]
  - BACK PAIN [None]
  - BEDRIDDEN [None]
  - DIZZINESS [None]
  - EDUCATIONAL PROBLEM [None]
  - EYE PAIN [None]
  - FIBROMYALGIA [None]
  - HORMONE LEVEL ABNORMAL [None]
  - HYPOAESTHESIA [None]
  - IMPAIRED WORK ABILITY [None]
  - INTERVERTEBRAL DISC DEGENERATION [None]
  - MEMORY IMPAIRMENT [None]
  - NECK PAIN [None]
  - OEDEMA PERIPHERAL [None]
  - PARAESTHESIA [None]
  - TREMOR [None]
  - VITAMIN D DEFICIENCY [None]
